FAERS Safety Report 23936774 (Version 1)
Quarter: 2024Q2

REPORT INFORMATION
  Report Type: Other
  Country: CN (occurrence: CN)
  Receive Date: 20240604
  Receipt Date: 20240604
  Transmission Date: 20240715
  Serious: Yes (Life-Threatening, Hospitalization, Other)
  Sender: FDA-Public Use
  Company Number: CN-GE HEALTHCARE-2024CSU005685

PATIENT
  Age: 61 Year
  Sex: Male
  Weight: 68 kg

DRUGS (6)
  1. VISIPAQUE [Suspect]
     Active Substance: IODIXANOL
     Indication: Arteriogram
     Dosage: 120 ML, TOTAL
     Route: 013
     Dates: start: 20240518, end: 20240518
  2. VISIPAQUE [Suspect]
     Active Substance: IODIXANOL
     Indication: Arterial angioplasty
  3. VISIPAQUE [Suspect]
     Active Substance: IODIXANOL
     Indication: Peripheral artery stent insertion
  4. SODIUM CHLORIDE [Concomitant]
     Active Substance: SODIUM CHLORIDE
     Indication: Arteriogram
     Dosage: UNK
     Route: 013
     Dates: start: 20240518, end: 20240518
  5. SODIUM CHLORIDE [Concomitant]
     Active Substance: SODIUM CHLORIDE
     Indication: Arterial angioplasty
  6. SODIUM CHLORIDE [Concomitant]
     Active Substance: SODIUM CHLORIDE
     Indication: Peripheral artery stent insertion

REACTIONS (6)
  - Hyperkalaemia [Unknown]
  - Septic shock [Unknown]
  - Contrast encephalopathy [Unknown]
  - Acute kidney injury [Unknown]
  - Heart rate increased [Unknown]
  - Respiratory rate increased [Unknown]

NARRATIVE: CASE EVENT DATE: 20240518
